FAERS Safety Report 19025298 (Version 1)
Quarter: 2021Q1

REPORT INFORMATION
  Report Type: Spontaneous
  Country: US (occurrence: US)
  Receive Date: 20210318
  Receipt Date: 20210318
  Transmission Date: 20210420
  Serious: No
  Sender: FDA-Public Use
  Company Number: US-GLAXOSMITHKLINE-US2021062011

PATIENT
  Age: 72 Year
  Sex: Female

DRUGS (3)
  1. ROPINIROLE. [Concomitant]
     Active Substance: ROPINIROLE
     Indication: PRODUCT USED FOR UNKNOWN INDICATION
     Dosage: UNK
  2. NUCALA [Suspect]
     Active Substance: MEPOLIZUMAB
     Indication: ASTHMA
     Dosage: 100 MG, VA
     Route: 058
     Dates: start: 20201112
  3. METOCLOPRAMIDE. [Suspect]
     Active Substance: METOCLOPRAMIDE
     Indication: REFLUX LARYNGITIS
     Dosage: 5 MG, Z
     Route: 048
     Dates: start: 20210305, end: 20210310

REACTIONS (8)
  - Nausea [Unknown]
  - Product dose omission issue [Unknown]
  - Product storage error [Unknown]
  - Reflux laryngitis [Unknown]
  - Malaise [Unknown]
  - Dizziness [Unknown]
  - Abdominal discomfort [Unknown]
  - Nightmare [Unknown]

NARRATIVE: CASE EVENT DATE: 20210305
